FAERS Safety Report 21730096 (Version 2)
Quarter: 2022Q4

REPORT INFORMATION
  Report Type: Report from Study
  Country: US (occurrence: US)
  Receive Date: 20221214
  Receipt Date: 20221229
  Transmission Date: 20230113
  Serious: Yes (Other)
  Sender: FDA-Public Use
  Company Number: US-TEVA-2022-US-2081153

PATIENT
  Age: 55 Year
  Sex: Male

DRUGS (1)
  1. COPAXONE [Suspect]
     Active Substance: GLATIRAMER ACETATE
     Indication: Multiple sclerosis
     Route: 065
     Dates: start: 2012

REACTIONS (12)
  - Anaphylactic shock [Unknown]
  - Anaphylactic reaction [Recovered/Resolved]
  - Chest discomfort [Unknown]
  - Burning sensation [Unknown]
  - Pharyngeal swelling [Unknown]
  - Speech disorder [Unknown]
  - Muscle tightness [Unknown]
  - Dyspnoea [Unknown]
  - Flushing [Unknown]
  - Injection site pain [Unknown]
  - Product quality issue [Unknown]
  - Syringe issue [Unknown]

NARRATIVE: CASE EVENT DATE: 20220101
